FAERS Safety Report 19582330 (Version 3)
Quarter: 2021Q3

REPORT INFORMATION
  Report Type: Spontaneous
  Country: CA (occurrence: CA)
  Receive Date: 20210720
  Receipt Date: 20210903
  Transmission Date: 20211014
  Serious: Yes (Hospitalization)
  Sender: FDA-Public Use
  Company Number: CA-CELLTRION INC.-2021CA008872

PATIENT

DRUGS (6)
  1. INFLECTRA [Suspect]
     Active Substance: INFLIXIMAB-DYYB
     Indication: COLITIS ULCERATIVE
     Dosage: 400 MG, INDUCTION AT 0, 2 6 WEEK THEN EVERY 8 WEEKS
     Route: 042
     Dates: start: 20210523, end: 20210618
  2. INFLECTRA [Suspect]
     Active Substance: INFLIXIMAB-DYYB
     Dosage: 800 MG (10 MG/KG) EVERY 4 WEEKS
     Route: 042
     Dates: start: 20210811
  3. PREDNISONE. [Concomitant]
     Active Substance: PREDNISONE
     Dosage: UNK (40 TABS TAPERING DOSE)
  4. INFLECTRA [Suspect]
     Active Substance: INFLIXIMAB-DYYB
     Dosage: 800 MG, INDUCTION AT 0, 2 6 WEEK THEN EVERY 8 WEEKS
     Route: 042
     Dates: start: 20210709
  5. INFLECTRA [Suspect]
     Active Substance: INFLIXIMAB-DYYB
     Dosage: 800 MG EVERY 8 WEEKS
     Route: 042
     Dates: start: 20210716
  6. PENTASA [Concomitant]
     Active Substance: MESALAMINE
     Dosage: 8 DF, 1X/DAY
     Route: 065

REACTIONS (6)
  - Drug ineffective [Unknown]
  - Therapeutic response shortened [Unknown]
  - Flatulence [Not Recovered/Not Resolved]
  - Drug level below therapeutic [Not Recovered/Not Resolved]
  - Off label use [Unknown]
  - Condition aggravated [Unknown]

NARRATIVE: CASE EVENT DATE: 2021
